FAERS Safety Report 17510763 (Version 3)
Quarter: 2022Q2

REPORT INFORMATION
  Report Type: Report from Study
  Country: US (occurrence: US)
  Receive Date: 20200306
  Receipt Date: 20220513
  Transmission Date: 20220720
  Serious: No
  Sender: FDA-Public Use
  Company Number: US-HARMONY BIOSCIENCES-2020HMY00130

PATIENT
  Age: 64 Year
  Sex: Male
  Weight: 104.31 kg

DRUGS (16)
  1. WAKIX [Suspect]
     Active Substance: PITOLISANT HYDROCHLORIDE
     Indication: Narcolepsy
     Dosage: 4.5 MG, 1X/DAY IN THE MORNING
     Route: 048
     Dates: start: 20191216, end: 20191222
  2. WAKIX [Suspect]
     Active Substance: PITOLISANT HYDROCHLORIDE
     Indication: Narcolepsy
     Dosage: 17.8 MG, 1X/DAY IN THE MORNING
     Route: 048
     Dates: start: 20191223
  3. WAKIX [Suspect]
     Active Substance: PITOLISANT HYDROCHLORIDE
     Dosage: 35.6 MG, 1X/DAY IN THE MORNING
     Route: 048
  4. XYREM [Concomitant]
     Active Substance: SODIUM OXYBATE
     Dosage: AT NIGHT AND THEN USUALLY WAKES UP AND TAKES ANOTHER DOSE
     Dates: start: 201811
  5. ESCITALOPRAM [Concomitant]
     Active Substance: ESCITALOPRAM OXALATE
     Dosage: UNK
     Dates: start: 201911
  6. TAMSULOSIN [Concomitant]
     Active Substance: TAMSULOSIN
  7. ASPIRIN [Concomitant]
     Active Substance: ASPIRIN
  8. ZYRTEC [Concomitant]
     Active Substance: CETIRIZINE HYDROCHLORIDE
     Dosage: UNK, AS NEEDED
  9. FISH OIL [Concomitant]
     Active Substance: FISH OIL
  10. GLUCOSAMINE [Concomitant]
     Active Substance: GLUCOSAMINE
  11. GINKGO [Concomitant]
     Active Substance: GINKGO
  12. VITAMIN B12 [Concomitant]
     Active Substance: CYANOCOBALAMIN
  13. VITAMIN B COMPLEX [Concomitant]
     Active Substance: CYANOCOBALAMIN\DEXPANTHENOL\NIACINAMIDE\PYRIDOXINE HYDROCHLORIDE\RIBOFLAVIN 5^-PHOSPHATE SODIUM\THIA
  14. PROBIOTICS NOS [Concomitant]
     Active Substance: PROBIOTICS NOS
  15. VITAMIN C [Concomitant]
     Active Substance: ASCORBIC ACID
  16. MENS MULTIVITAMIN [Concomitant]

REACTIONS (4)
  - Rapid eye movement sleep behaviour disorder [Not Recovered/Not Resolved]
  - Somnolence [Not Recovered/Not Resolved]
  - Poor quality sleep [Not Recovered/Not Resolved]
  - Abnormal dreams [Not Recovered/Not Resolved]

NARRATIVE: CASE EVENT DATE: 20191201
